FAERS Safety Report 18132410 (Version 1)
Quarter: 2020Q3

REPORT INFORMATION
  Report Type: Spontaneous
  Country: US (occurrence: US)
  Receive Date: 20200811
  Receipt Date: 20200811
  Transmission Date: 20201103
  Serious: Yes (Other)
  Sender: FDA-Public Use
  Company Number: US-SA-2020SA113333

PATIENT

DRUGS (3)
  1. LEMTRADA [Suspect]
     Active Substance: ALEMTUZUMAB
     Dosage: UNK
     Route: 065
     Dates: start: 20190607, end: 20190609
  2. LEMTRADA [Suspect]
     Active Substance: ALEMTUZUMAB
     Dosage: UNK
     Route: 065
     Dates: start: 20170428, end: 20170502
  3. LEMTRADA [Suspect]
     Active Substance: ALEMTUZUMAB
     Dosage: UNK
     Route: 065
     Dates: start: 20180517, end: 20180519

REACTIONS (6)
  - Anti-thyroid antibody positive [Unknown]
  - Autoimmune thyroiditis [Unknown]
  - Thyroxine free [Unknown]
  - Blood thyroid stimulating hormone decreased [Unknown]
  - Tri-iodothyronine free increased [Unknown]
  - Thyroid stimulating immunoglobulin [Unknown]

NARRATIVE: CASE EVENT DATE: 2020
